FAERS Safety Report 10342016 (Version 1)
Quarter: 2014Q3

REPORT INFORMATION
  Report Type: Spontaneous
  Country: US (occurrence: None)
  Receive Date: 20140724
  Receipt Date: 20140724
  Transmission Date: 20150326
  Serious: Yes (Life-Threatening)
  Sender: FDA-Public Use
  Company Number: None

PATIENT
  Age: 92 Year
  Sex: Female
  Weight: 68.49 kg

DRUGS (1)
  1. PEGASPARAGINASE [Suspect]
     Active Substance: PEGASPARGASE
     Indication: ACUTE LYMPHOCYTIC LEUKAEMIA
     Dosage: 1,500 UNITS ONE DOSE ON JULY 1   GIVEN ONCE  INTRAMUSCULAR
     Route: 030
     Dates: start: 20140717

REACTIONS (5)
  - Blood fibrinogen decreased [None]
  - Dysarthria [None]
  - Dysphagia [None]
  - Terminal insomnia [None]
  - Muscular weakness [None]

NARRATIVE: CASE EVENT DATE: 20140723
